FAERS Safety Report 7660297-1 (Version None)
Quarter: 2011Q3

REPORT INFORMATION
  Report Type: 
  Country: None (occurrence: None)
  Receive Date: 20110805
  Receipt Date: 20110727
  Transmission Date: 20111222
  Serious: Yes (Hospitalization, Other)
  Sender: FDA-Public Use
  Company Number: PHHY2010CA86149

PATIENT
  Sex: Male

DRUGS (9)
  1. INSULIN [Concomitant]
     Dosage: UNK UKN, UNK
  2. SANDOSTATIN LAR [Suspect]
     Indication: NEUROENDOCRINE TUMOUR
     Dosage: 20 MG PER MONTH
     Route: 030
     Dates: start: 20101215
  3. SANDOSTATIN [Suspect]
     Indication: NEUROENDOCRINE TUMOUR
     Dosage: 150 UG, BID
     Route: 058
     Dates: end: 20101214
  4. DILAUDID [Concomitant]
     Dosage: UNK UKN, UNK
  5. DIAMICRON [Concomitant]
     Dosage: UNK UKN, UNK
  6. CELEXA [Concomitant]
     Dosage: UNK UKN, UNK
  7. SANDOSTATIN LAR [Suspect]
     Dosage: 30 MG EVERY 4 WEEKS
     Route: 030
  8. LIPITOR [Concomitant]
     Dosage: UNK UKN, UNK
  9. PANTOPRAZOLE SODIUM [Concomitant]
     Dosage: UNK UKN, UNK

REACTIONS (3)
  - STAPHYLOCOCCAL INFECTION [None]
  - POSTOPERATIVE WOUND INFECTION [None]
  - ABDOMINAL INFECTION [None]
